FAERS Safety Report 10351559 (Version 2)
Quarter: 2014Q3

REPORT INFORMATION
  Report Type: Report from Study
  Country: IT (occurrence: IT)
  Receive Date: 20140730
  Receipt Date: 20140730
  Transmission Date: 20150326
  Serious: Yes (Other)
  Sender: FDA-Public Use
  Company Number: IT-ROXANE LABORATORIES, INC.-2012-EU-03660GD

PATIENT

DRUGS (2)
  1. METHOTREXATE [Suspect]
     Active Substance: METHOTREXATE
     Indication: RETROPERITONEAL FIBROSIS
     Dosage: MEDIAN STARTING DOSE 11.25 MG/WEEK (IQR 10 - 15 MG/WEEK), THEN TITRATED UP TO 15 - 20 MG/WEEK AND KE
     Route: 065
  2. PREDNISONE. [Suspect]
     Active Substance: PREDNISONE
     Indication: RETROPERITONEAL FIBROSIS
     Dosage: MEDIAN STARTING DOSE 0.75 MG/KG (IQR 0.5 - 0.85 MG/KG), THEN TAPERED TO 5 MG WITHIN 8 MONTHS, THEN K
     Route: 065

REACTIONS (2)
  - Sepsis [Unknown]
  - Hepatotoxicity [Unknown]
